FAERS Safety Report 8507305-3 (Version None)
Quarter: 2012Q3

REPORT INFORMATION
  Report Type: 
  Country: None (occurrence: None)
  Receive Date: 20120712
  Receipt Date: 20120704
  Transmission Date: 20120928
  Serious: No
  Sender: FDA-Public Use
  Company Number: US-PFIZER INC-2010US-36375

PATIENT
  Sex: Female
  Weight: 65 kg

DRUGS (8)
  1. CALAN SR [Suspect]
     Indication: SINUS TACHYCARDIA
     Dosage: 180 MG
     Route: 048
     Dates: start: 20070112
  2. CALAN SR [Suspect]
     Dosage: 120 MG
     Route: 048
     Dates: start: 20080311
  3. REGLAN [Concomitant]
     Dosage: UNK
  4. CALAN SR [Suspect]
     Dosage: 240 MG, UNK
     Route: 048
     Dates: start: 20080116
  5. PREVACID [Concomitant]
     Dosage: UNK
  6. LIPITOR [Concomitant]
     Dosage: UNK
  7. VESICARE [Concomitant]
     Dosage: UNK
  8. COUMADIN [Concomitant]
     Dosage: UNK

REACTIONS (1)
  - DIZZINESS [None]
